FAERS Safety Report 9862324 (Version 3)
Quarter: 2014Q3

REPORT INFORMATION
  Report Type: Spontaneous
  Country: US (occurrence: US)
  Receive Date: 20140203
  Receipt Date: 20140821
  Transmission Date: 20150326
  Serious: Yes (Hospitalization, Other)
  Sender: FDA-Public Use
  Company Number: US-BAYER-2014-013311

PATIENT
  Age: 50 Year
  Sex: Male
  Weight: 97.51 kg

DRUGS (3)
  1. METFORMIN [Concomitant]
     Active Substance: METFORMIN HYDROCHLORIDE
  2. GADAVIST [Suspect]
     Active Substance: GADOBUTROL
     Indication: NUCLEAR MAGNETIC RESONANCE IMAGING BRAIN
     Dosage: 10 ML, ONCE
     Route: 042
     Dates: start: 20140117, end: 20140117
  3. GADAVIST [Suspect]
     Active Substance: GADOBUTROL
     Indication: OCCIPITAL NEURALGIA

REACTIONS (2)
  - Atrial fibrillation [None]
  - Chest pain [None]

NARRATIVE: CASE EVENT DATE: 20140117
